FAERS Safety Report 25624332 (Version 2)
Quarter: 2025Q3

REPORT INFORMATION
  Report Type: Spontaneous
  Country: US (occurrence: US)
  Receive Date: 20250730
  Receipt Date: 20250919
  Transmission Date: 20251020
  Serious: Yes (Other)
  Sender: PFIZER
  Company Number: US-PFIZER INC-202500152205

PATIENT
  Age: 22 Year
  Sex: Male

DRUGS (2)
  1. ADCETRIS [Suspect]
     Active Substance: BRENTUXIMAB VEDOTIN
     Indication: Hodgkin^s disease
     Dosage: 120 MG, EVERY 3 WEEKS
     Dates: start: 20250602
  2. OPDIVO [Suspect]
     Active Substance: NIVOLUMAB
     Dates: start: 20250602

REACTIONS (4)
  - Hodgkin^s disease [Unknown]
  - Recurrent cancer [Unknown]
  - Off label use [Unknown]
  - Product use issue [Unknown]
